FAERS Safety Report 9805578 (Version 1)
Quarter: 2014Q1

REPORT INFORMATION
  Report Type: Spontaneous
  Country: US (occurrence: None)
  Receive Date: 20140108
  Receipt Date: 20140108
  Transmission Date: 20141002
  Serious: Yes (Hospitalization)
  Sender: FDA-Public Use
  Company Number: None

PATIENT
  Age: 55 None
  Sex: Female

DRUGS (1)
  1. CIMZIA PFS [Suspect]
     Indication: CROHN^S DISEASE
     Dosage: 200 Y X2 Q 4 WKS  SQ
     Route: 058
     Dates: start: 201312

REACTIONS (1)
  - Crohn^s disease [None]
